FAERS Safety Report 19726266 (Version 2)
Quarter: 2021Q3

REPORT INFORMATION
  Report Type: Spontaneous
  Country: ET (occurrence: ET)
  Receive Date: 20210820
  Receipt Date: 20210908
  Transmission Date: 20211014
  Serious: Yes (Hospitalization)
  Sender: FDA-Public Use
  Company Number: ET-MACLEODS PHARMACEUTICALS US LTD-MAC2021032357

PATIENT

DRUGS (2)
  1. DOLUTEGRAVIR, LAMIVUDINE, AND TENOFOVIR [Suspect]
     Active Substance: DOLUTEGRAVIR\LAMIVUDINE\TENOFOVIR DISOPROXIL FUMARATE
     Indication: HIV INFECTION WHO CLINICAL STAGE I
     Dosage: DTG DOSE 50 MG PO DAILY
     Route: 065
  2. COTRIMOXAZOLE PREVENTIVE THERAPY (CPT) [Concomitant]
     Indication: HIV INFECTION WHO CLINICAL STAGE I
     Dosage: UNK
     Route: 065

REACTIONS (2)
  - Hyperglycaemia [Recovered/Resolved]
  - Diabetic ketoacidosis [Recovered/Resolved]
